FAERS Safety Report 6262033-2 (Version None)
Quarter: 2009Q3

REPORT INFORMATION
  Report Type: 
  Country: None (occurrence: None)
  Receive Date: 20090709
  Receipt Date: 20090630
  Transmission Date: 20100115
  Serious: Yes (Other)
  Sender: FDA-Public Use
  Company Number: US-BAXTER-2009BH010824

PATIENT
  Age: 21 Year
  Sex: Female

DRUGS (2)
  1. ISOPROTERENOL HCL [Suspect]
     Indication: THERAPEUTIC PROCEDURE
     Route: 065
  2. EPINEPHRINE [Suspect]
     Route: 042

REACTIONS (1)
  - STRESS CARDIOMYOPATHY [None]
